FAERS Safety Report 22234967 (Version 1)
Quarter: 2023Q2

REPORT INFORMATION
  Report Type: Spontaneous
  Country: CN (occurrence: CN)
  Receive Date: 20230420
  Receipt Date: 20230420
  Transmission Date: 20230721
  Serious: Yes (Other)
  Sender: FDA-Public Use
  Company Number: CN-PFIZER INC-PV202300071103

PATIENT
  Age: 81 Year
  Sex: Male
  Weight: 63 kg

DRUGS (2)
  1. VFEND [Suspect]
     Active Substance: VORICONAZOLE
     Indication: Therapeutic procedure
     Dosage: 400 MG, 1X/DAY
     Route: 050
     Dates: start: 20230308, end: 20230308
  2. MOXIFLOXACIN HYDROCHLORIDE [Concomitant]
     Active Substance: MOXIFLOXACIN HYDROCHLORIDE
     Indication: Therapeutic procedure
     Dosage: 0.4 G, 1X/DAY
     Route: 041
     Dates: start: 20230307, end: 20230308

REACTIONS (4)
  - Delirium [Recovering/Resolving]
  - Disorganised speech [Recovering/Resolving]
  - Agitation [Recovering/Resolving]
  - Restlessness [Recovering/Resolving]

NARRATIVE: CASE EVENT DATE: 20230308
